FAERS Safety Report 7528696-6 (Version None)
Quarter: 2011Q2

REPORT INFORMATION
  Report Type: 
  Country: None (occurrence: None)
  Receive Date: 20110607
  Receipt Date: 20110603
  Transmission Date: 20111010
  Serious: Yes (Other)
  Sender: FDA-Public Use
  Company Number: US-JNJFOC-20110512601

PATIENT
  Sex: Female

DRUGS (2)
  1. ZYRTEC [Suspect]
     Indication: PRODUCT USED FOR UNKNOWN INDICATION
     Dosage: ^AS  RECOMMENDED^
     Route: 048
  2. ZYRTEC [Suspect]
     Route: 048

REACTIONS (2)
  - RASH GENERALISED [None]
  - URTICARIA [None]
